FAERS Safety Report 4388746-5 (Version None)
Quarter: 2004Q3

REPORT INFORMATION
  Report Type: 
  Country: None (occurrence: None)
  Receive Date: 20040701
  Receipt Date: 19940330
  Transmission Date: 20050211
  Serious: Yes (Hospitalization)
  Sender: FDA-Public Use
  Company Number: US-GLAXOSMITHKLINE-B0174769A

PATIENT
  Age: 77 Year
  Sex: Male
  Weight: 93 kg

DRUGS (3)
  1. CEFTAZIDIME [Suspect]
     Indication: MENINGITIS
     Dosage: 2G THREE TIMES PER DAY
     Route: 042
  2. VANCOMYCIN [Concomitant]
     Indication: MENINGITIS
     Dosage: 1G TWICE PER DAY
     Route: 042
  3. GENTAMICIN SULFATE [Concomitant]
     Dosage: 160MG PER DAY
     Route: 042

REACTIONS (7)
  - BLOOD CREATININE INCREASED [None]
  - COMA [None]
  - HAEMATOMA [None]
  - LETHARGY [None]
  - RASH MACULAR [None]
  - SKIN DESQUAMATION [None]
  - STATUS EPILEPTICUS [None]
